FAERS Safety Report 9925169 (Version 1)
Quarter: 2014Q1

REPORT INFORMATION
  Report Type: Spontaneous
  Country: US (occurrence: None)
  Receive Date: 20140225
  Receipt Date: 20140225
  Transmission Date: 20141002
  Serious: Yes (Death)
  Sender: FDA-Public Use
  Company Number: None

PATIENT
  Age: 80 Year
  Sex: Male

DRUGS (9)
  1. DABIGATRAN [Suspect]
     Indication: ATRIAL FIBRILLATION
     Dosage: 1 PILL QD ORAL
     Route: 048
     Dates: start: 20140116, end: 20140209
  2. ASPIRIN [Concomitant]
  3. DOXAZOSIN [Concomitant]
  4. HYDRALAZINE [Concomitant]
  5. LISINOPRIL [Concomitant]
  6. HYDROCHLOROTHIAZIDE [Concomitant]
  7. METFORMIN [Concomitant]
  8. POTASSIUM CHLORIDE [Concomitant]
  9. PRAVASTATIN [Concomitant]

REACTIONS (4)
  - Mental status changes [None]
  - Hypotension [None]
  - Gastrointestinal haemorrhage [None]
  - Shock [None]
